FAERS Safety Report 7112361-3 (Version None)
Quarter: 2010Q4

REPORT INFORMATION
  Report Type: 
  Country: None (occurrence: None)
  Receive Date: 20101119
  Receipt Date: 20100908
  Transmission Date: 20110411
  Serious: No
  Sender: FDA-Public Use
  Company Number: A0880290A

PATIENT
  Age: 73 Year
  Sex: Male

DRUGS (3)
  1. AVODART [Suspect]
     Indication: BENIGN PROSTATIC HYPERPLASIA
     Dosage: .4MG PER DAY
     Route: 048
  2. UNSPECIFIED MEDICATION [Suspect]
     Indication: URINARY RETENTION
  3. NO CONCURRENT MEDICATION [Concomitant]

REACTIONS (1)
  - ORTHOSTATIC HYPOTENSION [None]
